FAERS Safety Report 4424649-5 (Version None)
Quarter: 2004Q3

REPORT INFORMATION
  Report Type: 
  Country: None (occurrence: None)
  Receive Date: 20040809
  Receipt Date: 20040723
  Transmission Date: 20050211
  Serious: Yes (Hospitalization)
  Sender: FDA-Public Use
  Company Number: DSA_24671_2004

PATIENT
  Age: 68 Year
  Sex: Male

DRUGS (3)
  1. TEVETEN [Suspect]
     Indication: ESSENTIAL HYPERTENSION
     Dosage: 600 MG Q DAY PO
     Route: 048
     Dates: start: 20040331, end: 20040423
  2. ISTIN [Concomitant]
  3. NU-SEALS ASPIRIN [Concomitant]

REACTIONS (2)
  - PANCREATITIS [None]
  - SHOCK [None]
